FAERS Safety Report 16528246 (Version 1)
Quarter: 2019Q3

REPORT INFORMATION
  Report Type: Spontaneous
  Country: US (occurrence: US)
  Receive Date: 20190704
  Receipt Date: 20190704
  Transmission Date: 20191004
  Serious: No
  Sender: FDA-Public Use
  Company Number: US-GW PHARMA-201904USGW0867

PATIENT

DRUGS (6)
  1. DEPAKOTE [Concomitant]
     Active Substance: DIVALPROEX SODIUM
     Indication: PRODUCT USED FOR UNKNOWN INDICATION
     Dosage: UNK
     Route: 065
  2. EPIDIOLEX [Suspect]
     Active Substance: CANNABIDIOL
     Dosage: 4.89 MG/KG, 130 MILLIGRAM, BID
     Route: 048
     Dates: start: 20190401
  3. LAMICTAL [Concomitant]
     Active Substance: LAMOTRIGINE
     Indication: PRODUCT USED FOR UNKNOWN INDICATION
     Dosage: UNK
     Route: 065
  4. CLORAZEPATE [Concomitant]
     Active Substance: CLORAZEPATE DIPOTASSIUM
     Indication: PRODUCT USED FOR UNKNOWN INDICATION
     Dosage: UNK
     Route: 065
  5. EPIDIOLEX [Suspect]
     Active Substance: CANNABIDIOL
     Indication: SEIZURE
     Dosage: 4.89 MG/KG, 130 MILLIGRAM, BID
     Route: 048
  6. EPIDIOLEX [Suspect]
     Active Substance: CANNABIDIOL
     Dosage: 9.79 MG/KG, 260 MILLIGRAM, BID
     Route: 048
     Dates: start: 2019

REACTIONS (3)
  - Generalised tonic-clonic seizure [Unknown]
  - Somnolence [Unknown]
  - Seizure cluster [Unknown]

NARRATIVE: CASE EVENT DATE: 2019
